FAERS Safety Report 5819635-4 (Version None)
Quarter: 2008Q3

REPORT INFORMATION
  Report Type: 
  Country: None (occurrence: None)
  Receive Date: 20080723
  Receipt Date: 20080630
  Transmission Date: 20090109
  Serious: No
  Sender: FDA-Public Use
  Company Number: US-BOEHRINGER INGELHEIM GMBH, GERMANY-2008-BP-10212BP

PATIENT
  Sex: Male

DRUGS (5)
  1. ZANTAC 150 [Suspect]
     Indication: DYSPEPSIA
     Route: 048
     Dates: start: 20080101
  2. MEDICAL MARIJUANA [Concomitant]
     Indication: BIPOLAR DISORDER
     Route: 055
  3. MEDICAL MARIJUANA [Concomitant]
     Indication: INSOMNIA
  4. MEDICAL MARIJUANA [Concomitant]
     Indication: MIGRAINE
  5. MEDICAL MARIJUANA [Concomitant]
     Indication: STRESS

REACTIONS (4)
  - DIARRHOEA [None]
  - MEDICATION ERROR [None]
  - NAUSEA [None]
  - RECTAL HAEMORRHAGE [None]
